FAERS Safety Report 5802938-7 (Version None)
Quarter: 2008Q3

REPORT INFORMATION
  Report Type: 
  Country: None (occurrence: None)
  Receive Date: 20080703
  Receipt Date: 20080627
  Transmission Date: 20090109
  Serious: Yes (Hospitalization, Other)
  Sender: FDA-Public Use
  Company Number: 2008SP012921

PATIENT
  Age: 47 Year
  Sex: Female

DRUGS (3)
  1. RIBAVIRIN [Suspect]
     Indication: HEPATITIS C
     Dosage: PO
     Route: 048
     Dates: start: 20000101, end: 20000101
  2. INTRON A [Suspect]
     Indication: HEPATITIS C
     Dates: start: 20000101, end: 20000101
  3. INTRON A [Suspect]
     Indication: HEPATITIS C
     Dates: start: 20080523

REACTIONS (6)
  - CHOLECYSTECTOMY [None]
  - DIABETES MELLITUS [None]
  - DIARRHOEA [None]
  - DISEASE RECURRENCE [None]
  - HEPATITIS C [None]
  - WEIGHT DECREASED [None]
